FAERS Safety Report 11052751 (Version 1)
Quarter: 2015Q2

REPORT INFORMATION
  Report Type: Spontaneous
  Country: None (occurrence: None)
  Receive Date: 20150420
  Receipt Date: 20150420
  Transmission Date: 20150821
  Serious: Yes (Other)
  Sender: FDA-Public Use
  Company Number: None

PATIENT
  Age: 34 Year
  Sex: Female
  Weight: 65.77 kg

DRUGS (2)
  1. GEODON [Suspect]
     Active Substance: ZIPRASIDONE HYDROCHLORIDE\ZIPRASIDONE MESYLATE
     Indication: DEPRESSION
     Route: 048
     Dates: start: 20150212, end: 20150214
  2. GEODON [Suspect]
     Active Substance: ZIPRASIDONE HYDROCHLORIDE\ZIPRASIDONE MESYLATE
     Indication: ANXIETY
     Route: 048
     Dates: start: 20150212, end: 20150214

REACTIONS (2)
  - Tremor [None]
  - Muscle spasms [None]

NARRATIVE: CASE EVENT DATE: 20150214
